FAERS Safety Report 11092704 (Version 1)
Quarter: 2015Q2

REPORT INFORMATION
  Report Type: Spontaneous
  Country: US (occurrence: None)
  Receive Date: 20150505
  Receipt Date: 20150505
  Transmission Date: 20150821
  Serious: Yes (Hospitalization)
  Sender: FDA-Public Use
  Company Number: None

PATIENT
  Age: 57 Year
  Sex: Female
  Weight: 78 kg

DRUGS (1)
  1. BEVACIZUMAB (RHUMAB VEGF) [Suspect]
     Active Substance: BEVACIZUMAB
     Dates: end: 20150421

REACTIONS (7)
  - Respiratory failure [None]
  - Aspiration [None]
  - Seizure [None]
  - Hypotension [None]
  - Myocardial infarction [None]
  - Cerebrovascular accident [None]
  - Body temperature increased [None]

NARRATIVE: CASE EVENT DATE: 20150427
